FAERS Safety Report 23885921 (Version 2)
Quarter: 2024Q2

REPORT INFORMATION
  Report Type: Spontaneous
  Country: PL (occurrence: PL)
  Receive Date: 20240522
  Receipt Date: 20240611
  Transmission Date: 20240716
  Serious: Yes (Hospitalization)
  Sender: FDA-Public Use
  Company Number: None

PATIENT
  Age: 54 Year
  Sex: Female
  Weight: 63.7 kg

DRUGS (26)
  1. CARBOPLATIN [Suspect]
     Active Substance: CARBOPLATIN
     Indication: Non-small cell lung cancer metastatic
     Dosage: 658.000MG
     Route: 042
     Dates: start: 20230830
  2. PEMETREXED [Suspect]
     Active Substance: PEMETREXED
     Indication: Non-small cell lung cancer metastatic
     Dosage: ON 18/APR/2024, SHE RECEIVED THE MOST RECENT DOSE PRIOR TO SAE (840 MG)
     Route: 042
     Dates: start: 20230830
  3. ATEZOLIZUMAB [Concomitant]
     Active Substance: ATEZOLIZUMAB
     Indication: Non-small cell lung cancer metastatic
     Dosage: ON 18/APR/2024, SHE RECEIVED THE MOST RECENT DOSE PRIOR TO SAE
     Route: 065
     Dates: start: 20230830
  4. ATEZOLIZUMAB [Concomitant]
     Active Substance: ATEZOLIZUMAB
     Dosage: ON 18/APR/2024, SHE RECEIVED THE MOST RECENT DOSE PRIOR TO SAE
     Route: 065
     Dates: start: 20230830
  5. FLUDROCORTISONE [Concomitant]
     Active Substance: FLUDROCORTISONE
     Indication: Addison^s disease
     Route: 065
  6. FLUDROCORTISONE [Concomitant]
     Active Substance: FLUDROCORTISONE
     Indication: Addison^s disease
     Route: 065
  7. DEXAMETHASONE [Concomitant]
     Active Substance: DEXAMETHASONE
     Indication: Product used for unknown indication
     Dosage: 4.000MG
     Route: 065
     Dates: start: 20240417, end: 20240419
  8. DEXAMETHASONE [Concomitant]
     Active Substance: DEXAMETHASONE
     Dosage: 4.000MG
     Route: 065
     Dates: start: 20240417, end: 20240419
  9. FOLIC ACID [Concomitant]
     Active Substance: FOLIC ACID
     Indication: Product used for unknown indication
     Dosage: 400.000MG QD
     Route: 065
     Dates: start: 20230825
  10. FOLIC ACID [Concomitant]
     Active Substance: FOLIC ACID
     Dosage: 400.000MG QD
     Route: 065
     Dates: start: 20230825
  11. HYDROCORTISONE [Concomitant]
     Active Substance: HYDROCORTISONE
     Indication: Product used for unknown indication
     Route: 065
  12. HYDROCORTISONE [Concomitant]
     Active Substance: HYDROCORTISONE
     Indication: Product used for unknown indication
     Route: 065
  13. HYDROCORTISONE [Concomitant]
     Active Substance: HYDROCORTISONE
     Indication: Product used for unknown indication
     Route: 065
  14. HYDROCORTISONE [Concomitant]
     Active Substance: HYDROCORTISONE
     Indication: Product used for unknown indication
     Route: 065
  15. HYDROCORTISONE [Concomitant]
     Active Substance: HYDROCORTISONE
     Indication: Product used for unknown indication
     Route: 065
  16. HYDROCORTISONE [Concomitant]
     Active Substance: HYDROCORTISONE
     Indication: Product used for unknown indication
     Route: 065
  17. HYDROCORTISONE [Concomitant]
     Active Substance: HYDROCORTISONE
     Indication: Product used for unknown indication
     Route: 065
  18. HYDROCORTISONE [Concomitant]
     Active Substance: HYDROCORTISONE
     Indication: Product used for unknown indication
     Route: 065
  19. SODIUM CHLORIDE [Concomitant]
     Active Substance: SODIUM CHLORIDE
     Indication: Product used for unknown indication
     Route: 065
  20. SODIUM CHLORIDE [Concomitant]
     Active Substance: SODIUM CHLORIDE
     Indication: Product used for unknown indication
     Route: 065
  21. ONDANSETRON [Concomitant]
     Active Substance: ONDANSETRON
     Indication: Hypercalcaemia
     Dosage: 8.000MG
     Route: 065
     Dates: start: 20240418, end: 20240418
  22. ONDANSETRON [Concomitant]
     Active Substance: ONDANSETRON
     Dosage: 8.000MG
     Route: 065
     Dates: start: 20240418, end: 20240418
  23. PEMBROLIZUMAB [Concomitant]
     Active Substance: PEMBROLIZUMAB
     Dosage: ON 18/APR/2024, SHE RECEIVED THE MOST RECENT DOSE PRIOR TO SAE
     Route: 065
     Dates: start: 20230830
  24. PEMBROLIZUMAB [Concomitant]
     Active Substance: PEMBROLIZUMAB
     Indication: Non-small cell lung cancer metastatic
     Dosage: ON 18/APR/2024, SHE RECEIVED THE MOST RECENT DOSE PRIOR TO SAE
     Route: 065
     Dates: start: 20230830
  25. TIRAGOLUMAB [Concomitant]
     Active Substance: TIRAGOLUMAB
     Dosage: ON 18/APR/2024, SHE RECEIVED THE MOST RECENT DOSE PRIOR TO SAE
     Route: 065
     Dates: start: 20230830
  26. TIRAGOLUMAB [Concomitant]
     Active Substance: TIRAGOLUMAB
     Indication: Non-small cell lung cancer metastatic
     Dosage: ON 18/APR/2024, SHE RECEIVED THE MOST RECENT DOSE PRIOR TO SAE
     Route: 065
     Dates: start: 20230830

REACTIONS (1)
  - Asthenia [Recovered/Resolved]

NARRATIVE: CASE EVENT DATE: 20240510
